FAERS Safety Report 24415651 (Version 1)
Quarter: 2024Q4

REPORT INFORMATION
  Report Type: Spontaneous
  Country: US (occurrence: US)
  Receive Date: 20241009
  Receipt Date: 20241009
  Transmission Date: 20250114
  Serious: Yes (Other)
  Sender: GRANULES INDIA
  Company Number: US-GRANULES-US-2024GRASPO00451

PATIENT
  Sex: Female

DRUGS (2)
  1. METFORMIN HYDROCHLORIDE [Suspect]
     Active Substance: METFORMIN HYDROCHLORIDE
     Indication: Type 2 diabetes mellitus
     Route: 065
  2. METFORMIN HYDROCHLORIDE [Suspect]
     Active Substance: METFORMIN HYDROCHLORIDE
     Indication: Obesity

REACTIONS (4)
  - Cerebral haemorrhage [Unknown]
  - Breast cancer [Unknown]
  - Renal impairment [Unknown]
  - Product use in unapproved indication [Unknown]
